FAERS Safety Report 5090812-6 (Version None)
Quarter: 2006Q3

REPORT INFORMATION
  Report Type: 
  Country: None (occurrence: None)
  Receive Date: 20060823
  Receipt Date: 20060810
  Transmission Date: 20061208
  Serious: Yes (Death, Hospitalization)
  Sender: FDA-Public Use
  Company Number: TH-2006-016400

PATIENT
  Age: 64 Year
  Sex: Male

DRUGS (1)
  1. ULTRAVIST 300 [Suspect]
     Indication: COMPUTERISED TOMOGRAM
     Dosage: 100 ML, 1 DOSE, INTRAVENOUS
     Route: 042
     Dates: start: 20060607, end: 20060607

REACTIONS (9)
  - ANAPHYLACTIC SHOCK [None]
  - BLOOD PRESSURE IMMEASURABLE [None]
  - CIRRHOSIS ALCOHOLIC [None]
  - DIABETES MELLITUS [None]
  - ERYTHEMA [None]
  - HYPONATRAEMIA [None]
  - MUSCLE SPASMS [None]
  - PULSE ABSENT [None]
  - RESPIRATORY ARREST [None]
